FAERS Safety Report 5213399-3 (Version None)
Quarter: 2007Q1

REPORT INFORMATION
  Report Type: 
  Country: None (occurrence: None)
  Receive Date: 20070119
  Receipt Date: 20061113
  Transmission Date: 20070707
  Serious: No
  Sender: FDA-Public Use
  Company Number: US-GLAXOSMITHKLINE-A0627269A

PATIENT
  Sex: Female

DRUGS (7)
  1. ARIXTRA [Suspect]
     Indication: PULMONARY EMBOLISM
     Dosage: 7.5MG PER DAY
     Route: 058
     Dates: start: 20060711
  2. THYROID TAB [Concomitant]
  3. ACIPHEX [Concomitant]
  4. ZELNORM [Concomitant]
  5. MULTI-VITAMIN [Concomitant]
  6. CALCIUM [Concomitant]
  7. AMBIEN [Concomitant]

REACTIONS (5)
  - CONFUSIONAL STATE [None]
  - CONTUSION [None]
  - INSOMNIA [None]
  - LOCAL SWELLING [None]
  - PAIN [None]
